FAERS Safety Report 12950159 (Version 3)
Quarter: 2016Q4

REPORT INFORMATION
  Report Type: Spontaneous
  Country: FR (occurrence: FR)
  Receive Date: 20161116
  Receipt Date: 20161207
  Transmission Date: 20170207
  Serious: Yes (Other)
  Sender: FDA-Public Use
  Company Number: FR-TEVA-710356ROM

PATIENT
  Age: 51 Year
  Sex: Male

DRUGS (3)
  1. VITAMIN D [Concomitant]
     Active Substance: CHOLECALCIFEROL
     Route: 065
  2. FOLIC ACID. [Concomitant]
     Active Substance: FOLIC ACID
     Route: 065
  3. VINCRISTINE TEVA [Suspect]
     Active Substance: VINCRISTINE
     Indication: ANAPLASTIC OLIGODENDROGLIOMA
     Dosage: 1.5 MILLIGRAM DAILY; 1.5MG; DAY 28 OF THE SIXTH COURSE OF CHEMOTHERAPY PROTOCOL PCV
     Route: 058
     Dates: start: 20161013, end: 20161013

REACTIONS (4)
  - Incorrect route of drug administration [Unknown]
  - Product name confusion [Unknown]
  - Erythema [Recovering/Resolving]
  - Pain [Not Recovered/Not Resolved]

NARRATIVE: CASE EVENT DATE: 20161013
